FAERS Safety Report 10195665 (Version 1)
Quarter: 2014Q2

REPORT INFORMATION
  Report Type: Spontaneous
  Country: GB (occurrence: GB)
  Receive Date: 20140527
  Receipt Date: 20140527
  Transmission Date: 20141212
  Serious: Yes (Hospitalization)
  Sender: FDA-Public Use
  Company Number: GB-009507513-1405GBR012768

PATIENT
  Age: 18 Year
  Sex: Female

DRUGS (1)
  1. NEXPLANON [Suspect]
     Indication: CONTRACEPTIVE IMPLANT
     Route: 059
     Dates: start: 20140401, end: 20140507

REACTIONS (7)
  - Tearfulness [Recovered/Resolved]
  - Stress [Recovered/Resolved]
  - Mood altered [Recovered/Resolved]
  - Chest pain [Recovered/Resolved]
  - Anxiety [Recovered/Resolved]
  - Muscle spasms [Recovered/Resolved]
  - Nightmare [Recovered/Resolved]
